FAERS Safety Report 6837760-6 (Version None)
Quarter: 2010Q3

REPORT INFORMATION
  Report Type: 
  Country: None (occurrence: None)
  Receive Date: 20100713
  Receipt Date: 20070521
  Transmission Date: 20110219
  Serious: No
  Sender: FDA-Public Use
  Company Number: US-PFIZER INC-2007041142

PATIENT
  Sex: Female
  Weight: 54.4 kg

DRUGS (4)
  1. CHANTIX [Suspect]
     Indication: SMOKING CESSATION THERAPY
     Dates: start: 20070429
  2. PRILOSEC [Concomitant]
     Indication: ABDOMINAL DISCOMFORT
  3. HALCION [Concomitant]
     Indication: SLEEP DISORDER
  4. PERCOCET [Concomitant]
     Indication: OSTEOPENIA

REACTIONS (3)
  - ABDOMINAL PAIN UPPER [None]
  - DYSGEUSIA [None]
  - HEADACHE [None]
